FAERS Safety Report 6043223-0 (Version None)
Quarter: 2009Q1

REPORT INFORMATION
  Report Type: 
  Country: None (occurrence: None)
  Receive Date: 20090119
  Receipt Date: 20090112
  Transmission Date: 20090719
  Serious: Yes (Hospitalization)
  Sender: FDA-Public Use
  Company Number: US-ELI_LILLY_AND_COMPANY-US200901001663

PATIENT
  Sex: Male
  Weight: 126.98 kg

DRUGS (23)
  1. BYETTA [Suspect]
     Indication: TYPE 2 DIABETES MELLITUS
     Dosage: 5 UG, 2/D
     Route: 058
     Dates: start: 20050101, end: 20050101
  2. BYETTA [Suspect]
     Dosage: 10 UG, 2/D
     Route: 058
     Dates: start: 20050101
  3. BYETTA [Suspect]
     Dosage: 10 UG, 2/D
     Route: 058
  4. BYETTA [Suspect]
     Dosage: 10 UG, 2/D
     Route: 058
  5. BYETTA [Suspect]
     Dosage: 10 UG, 2/D
     Route: 058
     Dates: start: 20081201
  6. METFORMIN [Concomitant]
     Indication: TYPE 2 DIABETES MELLITUS
     Dosage: 500 MG, 2/D
     Route: 048
  7. ZETIA [Concomitant]
     Indication: BLOOD CHOLESTEROL
     Dosage: 10 MG, DAILY (1/D)
     Route: 048
  8. BUSPIRONE HCL [Concomitant]
     Dosage: 15 MG, 2/D
     Route: 048
  9. CIMETIDINE [Concomitant]
     Dosage: 300 MG, UNK
  10. COREG [Concomitant]
     Dosage: 25 MG, 2/D
     Route: 048
  11. COUMADIN [Concomitant]
     Indication: CARDIAC DISORDER
     Dosage: 6 MG, DAILY (1/D)
     Route: 048
  12. FUROSEMIDE [Concomitant]
     Indication: POLYURIA
     Dosage: 40 MG, 3/D
     Route: 048
  13. ISOSORBIDE DINITRATE [Concomitant]
     Indication: CARDIAC DISORDER
     Dosage: 40 MG, 2/D
     Route: 048
  14. KETOCONAZOLE [Concomitant]
     Dosage: UNK, AS NEEDED
     Route: 061
  15. LIPITOR [Concomitant]
     Indication: BLOOD CHOLESTEROL
     Dosage: 80 MG, DAILY (1/D)
     Route: 048
  16. LISINOPRIL [Concomitant]
     Indication: HYPERTENSION
     Dosage: 10 MG, DAILY (1/D)
     Route: 048
  17. MELOXICAM [Concomitant]
     Dosage: 7.5 MG, DAILY (1/D)
     Route: 048
  18. NITROGLYCERIN [Concomitant]
     Dosage: UNK, AS NEEDED
     Route: 062
  19. NITROGLYCERIN [Concomitant]
     Dosage: UNK, AS NEEDED
     Route: 060
  20. RANEXA [Concomitant]
     Indication: ANGINA PECTORIS
     Dosage: 1500 MG, 3/D
     Route: 048
  21. SERTRALINE [Concomitant]
     Dosage: 100 MG, DAILY (1/D)
     Route: 048
  22. SPIRONOLACTONE [Concomitant]
     Indication: POLYURIA
     Dosage: 12.5 MG, DAILY (1/D)
     Route: 048
  23. SPIRIVA [Concomitant]
     Indication: CHRONIC OBSTRUCTIVE PULMONARY DISEASE
     Dosage: UNK, AS NEEDED
     Route: 055

REACTIONS (8)
  - BLOOD GLUCOSE INCREASED [None]
  - CARDIAC PACEMAKER INSERTION [None]
  - DIZZINESS [None]
  - DYSPNOEA [None]
  - INJECTION SITE HAEMATOMA [None]
  - INTENTIONAL DRUG MISUSE [None]
  - MEDICATION ERROR [None]
  - PRODUCT QUALITY ISSUE [None]
